FAERS Safety Report 19444475 (Version 1)
Quarter: 2021Q2

REPORT INFORMATION
  Report Type: Spontaneous
  Country: US (occurrence: US)
  Receive Date: 20210621
  Receipt Date: 20210621
  Transmission Date: 20210717
  Serious: Yes (Other)
  Sender: FDA-Public Use
  Company Number: US-PFIZER INC-2021679126

PATIENT
  Age: 86 Year
  Sex: Female

DRUGS (1)
  1. XELJANZ [Suspect]
     Active Substance: TOFACITINIB CITRATE
     Dosage: 5 MG UNK
     Dates: start: 202105

REACTIONS (4)
  - Kidney infection [Unknown]
  - Fatigue [Unknown]
  - Asthenia [Unknown]
  - Pain in extremity [Unknown]

NARRATIVE: CASE EVENT DATE: 2021
